FAERS Safety Report 17422128 (Version 2)
Quarter: 2020Q1

REPORT INFORMATION
  Report Type: Spontaneous
  Country: IT (occurrence: IT)
  Receive Date: 20200214
  Receipt Date: 20200218
  Transmission Date: 20200409
  Serious: Yes (Hospitalization)
  Sender: FDA-Public Use
  Company Number: IT-GILEAD-2020-0451099

PATIENT
  Age: 85 Year
  Sex: Female

DRUGS (1)
  1. IDELALISIB [Suspect]
     Active Substance: IDELALISIB
     Indication: CHRONIC LYMPHOCYTIC LEUKAEMIA
     Dosage: 300 MG, QD
     Route: 048
     Dates: start: 20190809, end: 20200109

REACTIONS (2)
  - Diarrhoea [Recovered/Resolved]
  - Infection reactivation [Recovering/Resolving]

NARRATIVE: CASE EVENT DATE: 20200109
